FAERS Safety Report 13461318 (Version 1)
Quarter: 2017Q2

REPORT INFORMATION
  Report Type: Spontaneous
  Country: US (occurrence: US)
  Receive Date: 20170419
  Receipt Date: 20170419
  Transmission Date: 20170830
  Serious: Yes (Hospitalization)
  Sender: FDA-Public Use
  Company Number: None

PATIENT
  Age: 68 Year
  Sex: Male

DRUGS (1)
  1. RIVAROXABAN [Suspect]
     Active Substance: RIVAROXABAN
     Indication: ATRIAL FIBRILLATION
     Route: 048
     Dates: start: 20161208

REACTIONS (5)
  - Therapy cessation [None]
  - Diverticulitis [None]
  - Large intestine polyp [None]
  - Gastric haemorrhage [None]
  - Haematochezia [None]

NARRATIVE: CASE EVENT DATE: 20170318
